FAERS Safety Report 9425817 (Version 2)
Quarter: 2013Q3

REPORT INFORMATION
  Report Type: Report from Study
  Country: DE (occurrence: DE)
  Receive Date: 20130729
  Receipt Date: 20130820
  Transmission Date: 20140515
  Serious: Yes (Hospitalization)
  Sender: FDA-Public Use
  Company Number: DE-ABBOTT-13P-062-1078381-00

PATIENT
  Sex: Female
  Weight: 73 kg

DRUGS (3)
  1. HUMIRA [Suspect]
     Indication: ANKYLOSING SPONDYLITIS
     Route: 058
     Dates: start: 20120813
  2. HUMIRA [Suspect]
     Route: 058
     Dates: start: 2013
  3. DEXAMETHASONE (SUPERTENDIN) [Concomitant]
     Indication: PRODUCT USED FOR UNKNOWN INDICATION
     Dates: start: 20121128, end: 20121128

REACTIONS (2)
  - Urinary retention [Recovered/Resolved]
  - Congenital urinary tract obstruction [Unknown]
